FAERS Safety Report 15564394 (Version 2)
Quarter: 2018Q4

REPORT INFORMATION
  Report Type: Spontaneous
  Country: US (occurrence: US)
  Receive Date: 20181030
  Receipt Date: 20181206
  Transmission Date: 20190205
  Serious: No
  Sender: FDA-Public Use
  Company Number: US-ASTRAZENECA-2018SF29209

PATIENT
  Age: 54 Year
  Sex: Male
  Weight: 106.6 kg

DRUGS (3)
  1. BYETTA [Suspect]
     Active Substance: EXENATIDE
     Indication: DIABETES MELLITUS
     Route: 058
     Dates: start: 2013
  2. BYDUREON [Suspect]
     Active Substance: EXENATIDE
     Indication: DIABETES MELLITUS
     Route: 058
  3. ASPIRIN. [Concomitant]
     Active Substance: ASPIRIN
     Indication: ANTICOAGULANT THERAPY
     Route: 048

REACTIONS (8)
  - Injection site mass [Not Recovered/Not Resolved]
  - Nervousness [Unknown]
  - Injection site haemorrhage [Recovered/Resolved]
  - Memory impairment [Not Recovered/Not Resolved]
  - Injection site scar [Not Recovered/Not Resolved]
  - Product dose omission [Unknown]
  - Intentional device misuse [Recovered/Resolved]
  - Device issue [Unknown]

NARRATIVE: CASE EVENT DATE: 2015
